FAERS Safety Report 18476768 (Version 1)
Quarter: 2020Q4

REPORT INFORMATION
  Report Type: Spontaneous
  Country: ES (occurrence: ES)
  Receive Date: 20201107
  Receipt Date: 20201107
  Transmission Date: 20210114
  Serious: Yes (Hospitalization, Other)
  Sender: FDA-Public Use
  Company Number: ES-ACCORD-207605

PATIENT
  Age: 2 Year
  Sex: Male

DRUGS (28)
  1. LEVETIRACETAM. [Suspect]
     Active Substance: LEVETIRACETAM
     Indication: GENERALISED TONIC-CLONIC SEIZURE
     Dosage: 50 MILLIGRAM/KILOGRAM PER DAY
  2. LACOSAMIDE. [Suspect]
     Active Substance: LACOSAMIDE
     Indication: GENERALISED TONIC-CLONIC SEIZURE
     Dosage: 3 MILLIGRAM/KILOGRAM/DAY
  3. PIPERACILLIN/TAZOBACTAM [Concomitant]
     Active Substance: PIPERACILLIN SODIUM\TAZOBACTAM SODIUM
     Indication: ANTIBIOTIC THERAPY
     Dosage: 8-10MILLIGRAM/KILOGRAM PER 6 HOURS
     Route: 065
  4. BRIVARACETAM [Concomitant]
     Active Substance: BRIVARACETAM
     Indication: PARTIAL SEIZURES
     Route: 065
  5. LACOSAMIDE. [Suspect]
     Active Substance: LACOSAMIDE
     Indication: GENERALISED TONIC-CLONIC SEIZURE
     Dosage: 3.7 MILLIGRAM/KILOGRAM/DAY
  6. LACOSAMIDE. [Suspect]
     Active Substance: LACOSAMIDE
     Indication: GENERALISED TONIC-CLONIC SEIZURE
     Dosage: 5 MILLIGRAM/KILOGRAM/DAY
  7. ACICLOVIR [Concomitant]
     Active Substance: ACYCLOVIR
     Indication: EVIDENCE BASED TREATMENT
     Dosage: 20 MILLIGRAM/KILOGRAM, 3X/DAY (TID)
     Route: 065
  8. CARBAMAZEPINE. [Concomitant]
     Active Substance: CARBAMAZEPINE
     Indication: GENERALISED TONIC-CLONIC SEIZURE
     Dosage: 20 MILLIGRAM/KILOGRAM/DAY
  9. CARBAMAZEPINE. [Concomitant]
     Active Substance: CARBAMAZEPINE
     Indication: GENERALISED TONIC-CLONIC SEIZURE
     Dosage: 15 MILLIGRAM/KILOGRAM, 3X/DAY (TID)
  10. LACOSAMIDE. [Suspect]
     Active Substance: LACOSAMIDE
     Indication: GENERALISED TONIC-CLONIC SEIZURE
     Dosage: 1.7 MILLIGRAM/KILOGRAM/DAY
  11. PROPOFOL. [Concomitant]
     Active Substance: PROPOFOL
     Indication: PRODUCT USED FOR UNKNOWN INDICATION
     Route: 065
  12. MIDAZOLAM. [Concomitant]
     Active Substance: MIDAZOLAM
     Indication: EVIDENCE BASED TREATMENT
     Route: 065
  13. LEVETIRACETAM. [Suspect]
     Active Substance: LEVETIRACETAM
     Indication: GENERALISED TONIC-CLONIC SEIZURE
     Dosage: 40 MILLIGRAM/KILOGRAM PER DAY
  14. CARBAMAZEPINE. [Concomitant]
     Active Substance: CARBAMAZEPINE
     Indication: GENERALISED TONIC-CLONIC SEIZURE
     Dosage: 30 MILLIGRAM/KILOGRAM/DAY
  15. BRIVARACETAM [Concomitant]
     Active Substance: BRIVARACETAM
     Indication: PARTIAL SEIZURES
     Route: 065
  16. LEVETIRACETAM. [Suspect]
     Active Substance: LEVETIRACETAM
     Indication: GENERALISED TONIC-CLONIC SEIZURE
     Dosage: 20 MILLIGRAM/KILOGRAM PER DAY
  17. LEVETIRACETAM. [Suspect]
     Active Substance: LEVETIRACETAM
     Indication: GENERALISED TONIC-CLONIC SEIZURE
     Dosage: 30 MILLIGRAM/KILOGRAM PER DAY
  18. PHENYTOIN. [Concomitant]
     Active Substance: PHENYTOIN
     Indication: PARTIAL SEIZURES
     Dosage: RECEIVED FROM DAY 8 TO DAY 9 OF THE HOSPITALISATION
     Route: 065
  19. RIFAMPICIN [Concomitant]
     Active Substance: RIFAMPIN
     Indication: ANTIBIOTIC THERAPY
     Route: 065
  20. MEROPENEM. [Concomitant]
     Active Substance: MEROPENEM
     Indication: ANTIBIOTIC THERAPY
     Dosage: 40 MILLIGRAM/KILOGRAM, 3X/DAY (TID)
     Route: 065
  21. AZITHROMYCIN ANHYDROUS. [Concomitant]
     Active Substance: AZITHROMYCIN ANHYDROUS
     Indication: ANTIBIOTIC THERAPY
     Route: 065
  22. VANCOMYCIN [Concomitant]
     Active Substance: VANCOMYCIN
     Indication: ANTIBIOTIC THERAPY
     Dosage: 10 MILLIGRAM/KILOGRAM, 4X/DAY (QID)
     Route: 065
  23. CLARITHROMYCIN. [Concomitant]
     Active Substance: CLARITHROMYCIN
     Indication: EVIDENCE BASED TREATMENT
     Dosage: 15 MILLIGRAM/KILOGRAM/DAY
     Route: 065
  24. VALPROIC ACID. [Concomitant]
     Active Substance: VALPROIC ACID
     Indication: PARTIAL SEIZURES
     Dosage: RECEIVED FROM DAY 5 TO DAY 6 OF THE HOSPITALISATION
     Route: 065
  25. CEFOTAXIME [Concomitant]
     Active Substance: CEFOTAXIME SODIUM
     Indication: EVIDENCE BASED TREATMENT
     Dosage: 90 MILLIGRAM/KILOGRAM, 6X/DAY
     Route: 065
  26. CARBAMAZEPINE. [Concomitant]
     Active Substance: CARBAMAZEPINE
     Indication: GENERALISED TONIC-CLONIC SEIZURE
     Dosage: 10 MILLIGRAM/KILOGRAM, 2X/DAY (BID)
  27. BRIVARACETAM [Concomitant]
     Active Substance: BRIVARACETAM
     Indication: PARTIAL SEIZURES
     Route: 065
  28. CARBAMAZEPINE. [Concomitant]
     Active Substance: CARBAMAZEPINE
     Indication: GENERALISED TONIC-CLONIC SEIZURE
     Dosage: 35 MILLIGRAM/KILOGRAM/DAY

REACTIONS (3)
  - Neutropenia [Unknown]
  - Hyperammonaemia [Unknown]
  - Drug ineffective [Unknown]
